FAERS Safety Report 5330387-7 (Version None)
Quarter: 2007Q2

REPORT INFORMATION
  Report Type: 
  Country: None (occurrence: None)
  Receive Date: 20070521
  Receipt Date: 20070517
  Transmission Date: 20071010
  Serious: Yes (Other)
  Sender: FDA-Public Use
  Company Number: AU-BOEHRINGER INGELHEIM PHARMACEUTICALS, INC.-2007-BP-06781AU

PATIENT
  Sex: Male
  Weight: 26 kg

DRUGS (1)
  1. ATROVENT [Suspect]
     Indication: ASTHMA
     Route: 055

REACTIONS (3)
  - MALAISE [None]
  - SUPRAVENTRICULAR TACHYARRHYTHMIA [None]
  - VOMITING [None]
